FAERS Safety Report 9179542 (Version 1)
Quarter: 2013Q1

REPORT INFORMATION
  Report Type: Spontaneous
  Country: DK (occurrence: DK)
  Receive Date: 20130321
  Receipt Date: 20130321
  Transmission Date: 20140127
  Serious: Yes (Hospitalization)
  Sender: FDA-Public Use
  Company Number: DK-B.I. PHARMACEUTICALS,INC./RIDGEFIELD-2013-SW-00147DB

PATIENT
  Age: 80 Year
  Sex: Male

DRUGS (13)
  1. TRAJENTA [Suspect]
     Indication: TYPE 2 DIABETES MELLITUS
     Dosage: 5 MG
     Route: 048
     Dates: start: 20130221, end: 20130225
  2. FURIX [Suspect]
     Indication: HYPERTENSION
     Route: 048
  3. FURIX [Suspect]
     Dosage: 120 MG
     Route: 048
     Dates: start: 20130221, end: 20130224
  4. FURIX [Suspect]
     Dosage: 80 MG
     Route: 048
     Dates: start: 20130225
  5. AMLODIPINE [Suspect]
     Indication: HYPERTENSION
     Dosage: 10 MG
     Route: 048
  6. AMLODIPIN ^ACTAVIS^ [Concomitant]
     Indication: HYPERTENSION
  7. PINEX [Concomitant]
     Indication: PAIN
  8. KININ ^ALTERNOVA^ [Concomitant]
     Indication: MUSCLE SPASMS
  9. TRIATEC [Concomitant]
     Indication: HYPERTENSION
  10. CONTALGIN [Concomitant]
     Indication: PAIN
  11. SIMVASTATIN [Concomitant]
     Indication: CARDIOVASCULAR EVENT PROPHYLAXIS
  12. MAGNYL ^DAK^ [Concomitant]
     Indication: CEREBRAL THROMBOSIS
  13. PANTOLOC [Concomitant]
     Indication: GASTROOESOPHAGEAL REFLUX DISEASE

REACTIONS (2)
  - Renal failure acute [Unknown]
  - Dehydration [Unknown]
